FAERS Safety Report 4527367-8 (Version None)
Quarter: 2004Q4

REPORT INFORMATION
  Report Type: 
  Country: None (occurrence: None)
  Receive Date: 20041215
  Receipt Date: 20041210
  Transmission Date: 20050328
  Serious: Yes (Death, Life-Threatening)
  Sender: FDA-Public Use
  Company Number: US-BRISTOL-MYERS SQUIBB COMPANY-12793394

PATIENT

DRUGS (1)
  1. ERBITUX [Suspect]

REACTIONS (1)
  - ANAPHYLACTIC SHOCK [None]
